FAERS Safety Report 7701390-4 (Version None)
Quarter: 2011Q3

REPORT INFORMATION
  Report Type: 
  Country: None (occurrence: None)
  Receive Date: 20110822
  Receipt Date: 20110810
  Transmission Date: 20111222
  Serious: Yes (Death)
  Sender: FDA-Public Use
  Company Number: US-CELGENEUS-163-21880-11042994

PATIENT
  Sex: Female

DRUGS (9)
  1. FLUCONAZOLE [Concomitant]
     Indication: ANTIFUNGAL PROPHYLAXIS
     Dosage: 400 MILLIGRAM
     Route: 065
  2. PREVACID [Concomitant]
     Indication: ANTACID THERAPY
     Dosage: 30 MILLIGRAM
     Route: 065
  3. OXYGEN [Concomitant]
     Route: 065
  4. BACTRIM DS [Concomitant]
     Indication: PROPHYLAXIS
     Dosage: 1
     Route: 048
  5. REVLIMID [Suspect]
     Indication: MULTIPLE MYELOMA
     Dosage: 10 MILLIGRAM
     Route: 048
     Dates: start: 20070101, end: 20110324
  6. LOPRESSOR [Concomitant]
     Indication: HYPERTENSION
     Dosage: 25 MILLIGRAM
     Route: 048
  7. VALTREX [Concomitant]
     Indication: ANTIVIRAL PROPHYLAXIS
     Dosage: 500 MILLIGRAM
     Route: 048
  8. ORAMORPH SR [Concomitant]
     Indication: PAIN
     Dosage: 30 MILLIGRAM
     Route: 065
  9. AREDIA [Concomitant]
     Indication: BONE DISORDER
     Dosage: 90 MILLIGRAM
     Route: 065

REACTIONS (4)
  - MULTIPLE MYELOMA [None]
  - PNEUMONIA ASPIRATION [None]
  - PULMONARY OEDEMA [None]
  - DIARRHOEA [None]
